FAERS Safety Report 14106827 (Version 3)
Quarter: 2018Q2

REPORT INFORMATION
  Report Type: Spontaneous
  Country: US (occurrence: US)
  Receive Date: 20171019
  Receipt Date: 20180614
  Transmission Date: 20180711
  Serious: No
  Sender: FDA-Public Use
  Company Number: US-PFIZER INC-2017450825

PATIENT
  Age: 49 Year
  Sex: Female

DRUGS (1)
  1. VENLAFAXINE HCL [Suspect]
     Active Substance: VENLAFAXINE HYDROCHLORIDE
     Dosage: 150 MG, UNK

REACTIONS (5)
  - Palpitations [Unknown]
  - Heart rate irregular [Unknown]
  - Product quality issue [Unknown]
  - Headache [Unknown]
  - Hypertension [Unknown]
